FAERS Safety Report 19596933 (Version 3)
Quarter: 2021Q4

REPORT INFORMATION
  Report Type: Report from Study
  Country: MX (occurrence: MX)
  Receive Date: 20210722
  Receipt Date: 20211021
  Transmission Date: 20220303
  Serious: Yes (Disabling, Other)
  Sender: FDA-Public Use
  Company Number: NVSC2021MX115753

PATIENT
  Age: 41 Year
  Sex: Female
  Weight: 68 kg

DRUGS (4)
  1. GILENYA [Suspect]
     Active Substance: FINGOLIMOD HYDROCHLORIDE
     Indication: Multiple sclerosis
     Dosage: 1 DF, QD
     Route: 048
  2. GILENYA [Suspect]
     Active Substance: FINGOLIMOD HYDROCHLORIDE
     Dosage: UNK
     Route: 065
  3. GILENYA [Suspect]
     Active Substance: FINGOLIMOD HYDROCHLORIDE
     Dosage: 0.5 DF, QD
     Route: 048
     Dates: start: 2018
  4. COMENTER [Concomitant]
     Indication: Sleep disorder
     Dosage: UNK
     Route: 048
     Dates: start: 202109

REACTIONS (15)
  - Multiple sclerosis [Unknown]
  - Disease progression [Unknown]
  - Hypoaesthesia [Not Recovered/Not Resolved]
  - Asthenia [Not Recovered/Not Resolved]
  - Kidney infection [Not Recovered/Not Resolved]
  - Gastritis [Not Recovered/Not Resolved]
  - Arthralgia [Not Recovered/Not Resolved]
  - Drug ineffective [Recovering/Resolving]
  - Mood altered [Unknown]
  - Emotional disorder [Unknown]
  - Anxiety [Recovering/Resolving]
  - Colitis [Not Recovered/Not Resolved]
  - Depressive symptom [Unknown]
  - Pain [Unknown]
  - Headache [Not Recovered/Not Resolved]

NARRATIVE: CASE EVENT DATE: 20191201
